FAERS Safety Report 7398863-3 (Version None)
Quarter: 2011Q2

REPORT INFORMATION
  Report Type: 
  Country: None (occurrence: None)
  Receive Date: 20110404
  Receipt Date: 20110404
  Transmission Date: 20111010
  Serious: Yes (Other)
  Sender: FDA-Public Use
  Company Number: None

PATIENT
  Age: 77 Year
  Sex: Male
  Weight: 70 kg

DRUGS (1)
  1. PRIVIGEN [Suspect]
     Indication: THROMBOCYTOPENIA
     Dosage: 140 G TOTAL-20 GRAM THIS LOT
     Dates: start: 20110321, end: 20110322

REACTIONS (3)
  - HAEMOLYSIS [None]
  - NO THERAPEUTIC RESPONSE [None]
  - ANTIBODY TEST POSITIVE [None]
